FAERS Safety Report 18280197 (Version 4)
Quarter: 2022Q1

REPORT INFORMATION
  Report Type: Spontaneous
  Country: US (occurrence: US)
  Receive Date: 20200917
  Receipt Date: 20220112
  Transmission Date: 20220424
  Serious: No
  Sender: FDA-Public Use
  Company Number: US-PFIZER INC-2020360033

PATIENT
  Age: 73 Year
  Sex: Female

DRUGS (3)
  1. IBRANCE [Suspect]
     Active Substance: PALBOCICLIB
     Indication: Breast cancer female
     Dosage: 125 MG, CYCLIC (21D THEN 7D OFF)
     Dates: start: 20200120
  2. IBRANCE [Suspect]
     Active Substance: PALBOCICLIB
     Indication: Anaemia
     Dosage: 125 MG, DAILY (X21 DAYS Q 28 DAYS)
     Dates: start: 20200120
  3. IBRANCE [Suspect]
     Active Substance: PALBOCICLIB
     Dosage: 125 MG
     Dates: start: 20200505

REACTIONS (1)
  - Hot flush [Not Recovered/Not Resolved]

NARRATIVE: CASE EVENT DATE: 20200418
